FAERS Safety Report 6998457-5 (Version None)
Quarter: 2010Q3

REPORT INFORMATION
  Report Type: 
  Country: None (occurrence: None)
  Receive Date: 20100920
  Receipt Date: 20100908
  Transmission Date: 20110219
  Serious: Yes (Other)
  Sender: FDA-Public Use
  Company Number: US-JNJFOC-20100703807

PATIENT
  Sex: Female
  Weight: 71.71 kg

DRUGS (4)
  1. REMICADE [Suspect]
     Indication: RHEUMATOID ARTHRITIS
     Route: 042
  2. REMICADE [Suspect]
     Route: 042
  3. BENADRYL [Concomitant]
     Indication: PREMEDICATION
     Route: 065
  4. TYLENOL [Concomitant]
     Indication: PREMEDICATION
     Route: 065

REACTIONS (7)
  - CHEST DISCOMFORT [None]
  - CYANOSIS [None]
  - DYSPNOEA [None]
  - INFUSION RELATED REACTION [None]
  - LETHARGY [None]
  - PALPITATIONS [None]
  - SYNCOPE [None]
